FAERS Safety Report 4848323-6 (Version None)
Quarter: 2005Q4

REPORT INFORMATION
  Report Type: 
  Country: None (occurrence: None)
  Receive Date: 20051207
  Receipt Date: 20051207
  Transmission Date: 20060501
  Serious: No
  Sender: FDA-Public Use
  Company Number: None

PATIENT
  Age: 59 Year
  Sex: Female
  Weight: 63.5036 kg

DRUGS (1)
  1. LUNESTA [Suspect]
     Indication: INSOMNIA
     Dosage: ONE, ONE TIME ONLY ORAL
     Route: 048
     Dates: start: 20051028

REACTIONS (2)
  - HALLUCINATION, VISUAL [None]
  - NIGHTMARE [None]
